FAERS Safety Report 6408365-6 (Version None)
Quarter: 2009Q4

REPORT INFORMATION
  Report Type: 
  Country: None (occurrence: None)
  Receive Date: 20091021
  Receipt Date: 20091009
  Transmission Date: 20100525
  Serious: Yes (Hospitalization, Other)
  Sender: FDA-Public Use
  Company Number: TR-PFIZER INC-2009262070

PATIENT
  Age: 17 Year

DRUGS (2)
  1. PREDNISOLONE AND PREDNISOLONE STEAGLATE [Suspect]
     Dosage: 4 MG, 1X/DAY
     Route: 048
  2. PREDNISOLONE AND PREDNISOLONE STEAGLATE [Suspect]
     Dosage: 25 MG, 1X/DAY
     Route: 042

REACTIONS (3)
  - GASTROINTESTINAL DISORDER [None]
  - HYPERSEXUALITY [None]
  - PSYCHOTIC DISORDER [None]
